FAERS Safety Report 24657783 (Version 1)
Quarter: 2024Q4

REPORT INFORMATION
  Report Type: Spontaneous
  Country: US (occurrence: US)
  Receive Date: 20241125
  Receipt Date: 20241125
  Transmission Date: 20250114
  Serious: No
  Sender: DR REDDYS
  Company Number: None

PATIENT
  Age: 65 Year
  Sex: Female

DRUGS (5)
  1. CLOZAPINE [Suspect]
     Active Substance: CLOZAPINE
     Indication: Schizophrenia
  2. CLOZAPINE [Suspect]
     Active Substance: CLOZAPINE
  3. AMIODARONE [Suspect]
     Active Substance: AMIODARONE
     Indication: Supraventricular tachycardia
     Dosage: DAY 1 OF AMIODARONE TREATMENT
     Route: 048
  4. AMIODARONE [Suspect]
     Active Substance: AMIODARONE
     Dosage: DAY 3 TO DAY 6 OF AMIODARONE TREATMENT
     Route: 048
  5. AMIODARONE [Suspect]
     Active Substance: AMIODARONE
     Dosage: FROM DAY 7 OF AMIODARONE TREATMENT
     Route: 048

REACTIONS (2)
  - Antipsychotic drug level above therapeutic [Unknown]
  - Drug interaction [Unknown]
